FAERS Safety Report 10873556 (Version 1)
Quarter: 2015Q1

REPORT INFORMATION
  Report Type: Spontaneous
  Country: US (occurrence: None)
  Receive Date: 20150223
  Receipt Date: 20150223
  Transmission Date: 20150721
  Serious: Yes (Hospitalization, Other)
  Sender: FDA-Public Use
  Company Number: None

PATIENT
  Age: 77 Year
  Sex: Female
  Weight: 76.2 kg

DRUGS (3)
  1. PANTOPRAZOLE [Suspect]
     Active Substance: PANTOPRAZOLE SODIUM
     Indication: GASTROOESOPHAGEAL REFLUX DISEASE
     Route: 048
     Dates: start: 20141219, end: 20150209
  2. LISINOPRIL. [Concomitant]
     Active Substance: LISINOPRIL
  3. DORZOLAMIDE HCL/TIMOLOL [Concomitant]

REACTIONS (12)
  - Mucous stools [None]
  - Activities of daily living impaired [None]
  - Drug intolerance [None]
  - Abnormal faeces [None]
  - Abdominal pain upper [None]
  - Frequent bowel movements [None]
  - Faeces discoloured [None]
  - Diarrhoea [None]
  - Headache [None]
  - Muscular weakness [None]
  - Malaise [None]
  - Quality of life decreased [None]

NARRATIVE: CASE EVENT DATE: 20150128
